FAERS Safety Report 23392859 (Version 3)
Quarter: 2024Q2

REPORT INFORMATION
  Report Type: Report from Study
  Country: US (occurrence: US)
  Receive Date: 20240111
  Receipt Date: 20240625
  Transmission Date: 20240715
  Serious: Yes (Other)
  Sender: FDA-Public Use
  Company Number: US-UCBSA-2022050813

PATIENT
  Sex: Female

DRUGS (3)
  1. LACOSAMIDE [Suspect]
     Active Substance: LACOSAMIDE
     Indication: Seizure
     Dosage: 200 MILLIGRAM, 2X/DAY (BID)
  2. LACOSAMIDE [Suspect]
     Active Substance: LACOSAMIDE
     Dosage: 200MG 1 AND A HALF TABLET BY MOUTH TWICE A DAY
     Route: 048
  3. LACOSAMIDE [Suspect]
     Active Substance: LACOSAMIDE
     Dosage: 200 MG - 1 TABLET (200MG) ORAL QAM AND 1 + 1/2 TABLETS (300 MG) QPM, 2X/DAY (BID)
     Route: 048

REACTIONS (7)
  - Intentional self-injury [Not Recovered/Not Resolved]
  - Therapy interrupted [Unknown]
  - Product availability issue [Unknown]
  - Treatment noncompliance [Unknown]
  - Overdose [Unknown]
  - Wrong technique in product usage process [Unknown]
  - Off label use [Unknown]
